FAERS Safety Report 10882727 (Version 1)
Quarter: 2015Q1

REPORT INFORMATION
  Report Type: Spontaneous
  Country: DE (occurrence: DE)
  Receive Date: 20150303
  Receipt Date: 20150303
  Transmission Date: 20150721
  Serious: Yes (Other)
  Sender: FDA-Public Use
  Company Number: DE-ABBVIE-15P-062-1351149-00

PATIENT
  Age: 17 Year
  Sex: Female

DRUGS (1)
  1. ADALIMUMAB [Suspect]
     Active Substance: ADALIMUMAB
     Indication: SAPHO SYNDROME
     Route: 065

REACTIONS (5)
  - Central nervous system lesion [Unknown]
  - Meningitis [Recovering/Resolving]
  - Paradoxical drug reaction [Recovering/Resolving]
  - Lung infiltration [Recovering/Resolving]
  - Tuberculosis [Recovering/Resolving]
